FAERS Safety Report 19030625 (Version 2)
Quarter: 2022Q1

REPORT INFORMATION
  Report Type: Spontaneous
  Country: JP (occurrence: JP)
  Receive Date: 20210319
  Receipt Date: 20220307
  Transmission Date: 20220423
  Serious: Yes (Life-Threatening, Other)
  Sender: FDA-Public Use
  Company Number: JP-ACCORD-219816

PATIENT
  Age: 74 Year
  Sex: Female

DRUGS (4)
  1. IRINOTECAN [Suspect]
     Active Substance: IRINOTECAN
     Indication: Cystadenocarcinoma pancreas
     Dosage: MODIFIED FOLFIRINOX
  2. OXALIPLATIN [Suspect]
     Active Substance: OXALIPLATIN
     Indication: Cystadenocarcinoma pancreas
     Dosage: 80% OF 65 MG/M^2
  3. FLUOROURACIL [Suspect]
     Active Substance: FLUOROURACIL
     Indication: Cystadenocarcinoma pancreas
     Dosage: OVER A 46-H PERIOD, EVERY 2 WEEKS
  4. LEUCOVORIN [Suspect]
     Active Substance: LEUCOVORIN
     Indication: Cystadenocarcinoma pancreas

REACTIONS (4)
  - Peripheral sensory neuropathy [Unknown]
  - Fatigue [Unknown]
  - Cardiac failure [Unknown]
  - Herpes zoster [Unknown]
